FAERS Safety Report 6302314-7 (Version None)
Quarter: 2009Q3

REPORT INFORMATION
  Report Type: 
  Country: None (occurrence: None)
  Receive Date: 20090810
  Receipt Date: 20090731
  Transmission Date: 20100115
  Serious: Yes (Hospitalization)
  Sender: FDA-Public Use
  Company Number: US-CELGENEUS-163-21880-08111109

PATIENT
  Sex: Female

DRUGS (1)
  1. REVLIMID [Suspect]
     Indication: MULTIPLE MYELOMA
     Route: 048
     Dates: start: 20080901, end: 20081101

REACTIONS (4)
  - ARTERIOSPASM CORONARY [None]
  - BLOOD COUNT ABNORMAL [None]
  - MYOCARDIAL ISCHAEMIA [None]
  - PNEUMONIA [None]
